FAERS Safety Report 19766916 (Version 39)
Quarter: 2024Q2

REPORT INFORMATION
  Report Type: Report from Study
  Country: US (occurrence: US)
  Receive Date: 20210830
  Receipt Date: 20240606
  Transmission Date: 20240716
  Serious: Yes (Hospitalization, Other)
  Sender: FDA-Public Use
  Company Number: US-SHIRE-US201933018AA

PATIENT
  Age: 33 Year
  Sex: Female

DRUGS (5)
  1. HUMAN IMMUNOGLOBULIN G [Suspect]
     Active Substance: HUMAN IMMUNOGLOBULIN G
     Indication: Primary immunodeficiency syndrome
     Dosage: UNK
     Route: 065
  2. GAMMAGARD LIQUID [Suspect]
     Active Substance: HUMAN IMMUNOGLOBULIN G
     Indication: Primary immunodeficiency syndrome
     Dosage: UNK
     Route: 042
  3. GAMMAGARD LIQUID [Suspect]
     Active Substance: HUMAN IMMUNOGLOBULIN G
     Indication: Immunodeficiency common variable
  4. GAMMAGARD S/D [Suspect]
     Active Substance: HUMAN IMMUNOGLOBULIN G
     Indication: Primary immunodeficiency syndrome
     Dosage: UNK
     Route: 042
  5. GAMMAGARD S/D [Suspect]
     Active Substance: HUMAN IMMUNOGLOBULIN G
     Indication: Primary immunodeficiency syndrome
     Dosage: UNK
     Route: 042

REACTIONS (34)
  - COVID-19 [Unknown]
  - Fungal infection [Not Recovered/Not Resolved]
  - Urinary tract infection [Unknown]
  - Sinusitis [Unknown]
  - Sinusitis bacterial [Unknown]
  - Oesophageal infection [Unknown]
  - Hepatic neoplasm [Unknown]
  - Spinal compression fracture [Unknown]
  - Sepsis [Unknown]
  - Kidney infection [Unknown]
  - Pneumonia [Unknown]
  - Clostridium difficile infection [Unknown]
  - Neuropathy peripheral [Unknown]
  - Transient ischaemic attack [Unknown]
  - Food allergy [Unknown]
  - Infection [Unknown]
  - Pulmonary mass [Unknown]
  - Bacterial infection [Unknown]
  - White blood cell count increased [Unknown]
  - T-lymphocyte count decreased [Unknown]
  - Bronchitis [Unknown]
  - Wound infection [Unknown]
  - Localised infection [Unknown]
  - Bacterial test positive [Unknown]
  - Muscle disorder [Unknown]
  - Appendicolith [Unknown]
  - Tongue ulceration [Unknown]
  - Malaise [Unknown]
  - Hypersensitivity [Unknown]
  - Swelling [Unknown]
  - Blood pressure increased [Not Recovered/Not Resolved]
  - Pyrexia [Not Recovered/Not Resolved]
  - Device physical property issue [Unknown]
  - Product dose omission issue [Unknown]

NARRATIVE: CASE EVENT DATE: 20240308
